FAERS Safety Report 25131452 (Version 2)
Quarter: 2025Q3

REPORT INFORMATION
  Report Type: Spontaneous
  Country: EU (occurrence: EU)
  Receive Date: 20250327
  Receipt Date: 20250715
  Transmission Date: 20251020
  Serious: Yes (Other)
  Sender: ALEXION PHARMACEUTICALS
  Company Number: EU-ASTRAZENECA-202503EEA018313BE

PATIENT
  Sex: Male

DRUGS (1)
  1. ULTOMIRIS [Suspect]
     Active Substance: RAVULIZUMAB-CWVZ
     Indication: Paroxysmal nocturnal haemoglobinuria
     Route: 065

REACTIONS (7)
  - Haemolysis [Unknown]
  - Anaemia [Unknown]
  - Road traffic accident [Unknown]
  - Lower limb fracture [Unknown]
  - Wound infection [Unknown]
  - Impaired healing [Unknown]
  - Off label use [Unknown]
